FAERS Safety Report 23655329 (Version 1)
Quarter: 2024Q1

REPORT INFORMATION
  Report Type: Spontaneous
  Country: FR (occurrence: FR)
  Receive Date: 20240320
  Receipt Date: 20240320
  Transmission Date: 20240410
  Serious: Yes (Hospitalization, Other)
  Sender: FDA-Public Use
  Company Number: FR-SUN PHARMACEUTICAL INDUSTRIES LTD-2024R1-437156

PATIENT
  Age: 53 Year
  Sex: Male

DRUGS (2)
  1. TRIAMCINOLONE [Suspect]
     Active Substance: TRIAMCINOLONE
     Indication: Whipple^s disease
     Dosage: UNK
     Route: 057
  2. OZURDEX [Suspect]
     Active Substance: DEXAMETHASONE
     Indication: Whipple^s disease
     Dosage: UNK

REACTIONS (4)
  - Cataract [Unknown]
  - Macular thickening [Unknown]
  - Therapeutic response decreased [Unknown]
  - Uveitic glaucoma [Unknown]
